FAERS Safety Report 5264953-4 (Version None)
Quarter: 2007Q1

REPORT INFORMATION
  Report Type: 
  Country: None (occurrence: None)
  Receive Date: 20070314
  Receipt Date: 20070307
  Transmission Date: 20070707
  Serious: Yes (Other)
  Sender: FDA-Public Use
  Company Number: JP-MERCK-0702USA04265

PATIENT
  Age: 61 Year
  Sex: Male

DRUGS (3)
  1. HYZAAR [Suspect]
     Indication: HYPERTENSION
     Route: 048
     Dates: start: 20061209
  2. BYLOTENSIN [Suspect]
     Indication: HYPERTENSION
     Route: 048
     Dates: end: 20070204
  3. HARNAL [Concomitant]
     Route: 048

REACTIONS (3)
  - LOSS OF CONSCIOUSNESS [None]
  - ORTHOSTATIC HYPOTENSION [None]
  - TRANSIENT ISCHAEMIC ATTACK [None]
